FAERS Safety Report 17062453 (Version 2)
Quarter: 2020Q1

REPORT INFORMATION
  Report Type: Spontaneous
  Country: US (occurrence: US)
  Receive Date: 20191122
  Receipt Date: 20200318
  Transmission Date: 20200409
  Serious: No
  Sender: FDA-Public Use
  Company Number: US-AMGEN-USASP2019187122

PATIENT
  Age: 82 Year
  Sex: Female

DRUGS (1)
  1. PROLIA [Suspect]
     Active Substance: DENOSUMAB
     Indication: OSTEOPOROSIS POSTMENOPAUSAL
     Dosage: 60 MILLIGRAM, Q6MO
     Route: 065
     Dates: start: 20130906

REACTIONS (6)
  - Musculoskeletal discomfort [Unknown]
  - Therapeutic response unexpected [Unknown]
  - Limb discomfort [Unknown]
  - Cystitis [Unknown]
  - Therapeutic product effect decreased [Unknown]
  - Urinary incontinence [Unknown]

NARRATIVE: CASE EVENT DATE: 2014
